FAERS Safety Report 9275076 (Version 1)
Quarter: 2013Q2

REPORT INFORMATION
  Report Type: Spontaneous
  Country: US (occurrence: None)
  Receive Date: 20130501
  Receipt Date: 20130501
  Transmission Date: 20140414
  Serious: Yes (Hospitalization)
  Sender: FDA-Public Use
  Company Number: None

PATIENT
  Age: 69 Year
  Sex: Female
  Weight: 74.7 kg

DRUGS (2)
  1. XARELTO 20MG JANSSEN [Suspect]
     Indication: ATRIAL FIBRILLATION
     Dosage: 20MG ONCE D AILY PO
     Route: 048
  2. ADVIL PM [Suspect]
     Indication: INSOMNIA
     Route: 048

REACTIONS (4)
  - Dyspnoea [None]
  - Syncope [None]
  - Anaemia [None]
  - Melaena [None]
